FAERS Safety Report 16407353 (Version 1)
Quarter: 2019Q2

REPORT INFORMATION
  Report Type: Spontaneous
  Country: US (occurrence: US)
  Receive Date: 20190608
  Receipt Date: 20190608
  Transmission Date: 20190711
  Serious: No
  Sender: FDA-Public Use
  Company Number: US-TEVA-2019-US-1051650

PATIENT
  Sex: Female
  Weight: 51.76 kg

DRUGS (4)
  1. CARBIDOPA 25 MG AND LEVODOPA 100 MG ACTAVIS [Suspect]
     Active Substance: CARBIDOPA\LEVODOPA
     Route: 065
  2. NEUPRO [Concomitant]
     Active Substance: ROTIGOTINE
     Route: 061
  3. CARBIDOPA 25 MG AND LEVODOPA 100 MG ACTAVIS [Suspect]
     Active Substance: CARBIDOPA\LEVODOPA
     Indication: PARKINSON^S DISEASE
     Dosage: FORM STRENGTH: CARBIDOPA 25 MG AND LEVODOPA 100 MG. AS DIRECTED
     Route: 048
  4. ALPRAZOLAM. [Concomitant]
     Active Substance: ALPRAZOLAM
     Route: 048

REACTIONS (2)
  - Freezing phenomenon [Unknown]
  - Drug ineffective [Unknown]

NARRATIVE: CASE EVENT DATE: 201904
